FAERS Safety Report 12581296 (Version 7)
Quarter: 2017Q3

REPORT INFORMATION
  Report Type: Spontaneous
  Country: US (occurrence: US)
  Receive Date: 20160721
  Receipt Date: 20170724
  Transmission Date: 20171127
  Serious: Yes (Hospitalization)
  Sender: FDA-Public Use
  Company Number: US-ACTELION-A-NJ2016-139411

PATIENT
  Age: 36 Year
  Sex: Female
  Weight: 126.98 kg

DRUGS (4)
  1. VELETRI [Suspect]
     Active Substance: EPOPROSTENOL
     Dosage: 22.25 NG/KG, PER MIN
     Route: 042
     Dates: start: 20130619
  2. VELETRI [Suspect]
     Active Substance: EPOPROSTENOL
     Indication: PULMONARY ARTERIAL HYPERTENSION
     Dosage: 29.5 NG/KG, PER MIN
     Route: 042
  3. VELETRI [Suspect]
     Active Substance: EPOPROSTENOL
     Dosage: UNK
     Route: 042
  4. VERAPAMIL [Concomitant]
     Active Substance: VERAPAMIL HYDROCHLORIDE

REACTIONS (9)
  - Pulmonary arterial hypertension [Unknown]
  - Neck pain [Unknown]
  - Walking distance test abnormal [Unknown]
  - Catheter site discharge [Unknown]
  - Catheter site pruritus [Unknown]
  - Catheter site related reaction [Unknown]
  - Chest pain [Unknown]
  - Blood calcium decreased [Unknown]
  - Oxygen saturation decreased [Unknown]

NARRATIVE: CASE EVENT DATE: 20170329
